FAERS Safety Report 4603644-7 (Version None)
Quarter: 2005Q1

REPORT INFORMATION
  Report Type: 
  Country: None (occurrence: None)
  Receive Date: 20050308
  Receipt Date: 20050223
  Transmission Date: 20050727
  Serious: Yes (Life-Threatening)
  Sender: FDA-Public Use
  Company Number: CAP04000274

PATIENT
  Age: 45 Year
  Sex: Female

DRUGS (2)
  1. DIDROCAL           (ETIDRONATE DISODIUM, / CALCIUM CARBONATE CYCLICAL) [Suspect]
     Indication: OSTEOPOROSIS POSTMENOPAUSAL
     Dosage: 1 TABLET ONCE DAILY, ORAL
     Route: 048
     Dates: start: 20040908, end: 20041010
  2. MACROBID       (NITROFURANTOIN MONOHYDRATE/MACROCRYSTALS) [Suspect]
     Indication: CYSTITIS
     Dosage: 100 MG, 2/DAY, ORAL
     Route: 048
     Dates: start: 20041003, end: 20041009

REACTIONS (10)
  - BLISTER [None]
  - CHEST PAIN [None]
  - CYSTITIS [None]
  - DYSPNOEA [None]
  - ECZEMA [None]
  - RASH GENERALISED [None]
  - STOMACH DISCOMFORT [None]
  - TREATMENT NONCOMPLIANCE [None]
  - WHEEZING [None]
  - WHITE BLOOD CELL COUNT INCREASED [None]
